FAERS Safety Report 9918056 (Version 2)
Quarter: 2014Q1

REPORT INFORMATION
  Report Type: Spontaneous
  Country: US (occurrence: US)
  Receive Date: 20140223
  Receipt Date: 20140223
  Transmission Date: 20141002
  Serious: Yes (Disabling)
  Sender: FDA-Public Use
  Company Number: US-GE HEALTHCARE MEDICAL DIAGNOSTICS-OSCN-PR-0902S-0093

PATIENT
  Age: 55 Year
  Sex: Male

DRUGS (2)
  1. OMNISCAN [Suspect]
     Indication: SKIN ULCER
     Dates: start: 20050118, end: 20050118
  2. OMNISCAN [Suspect]
     Indication: SKIN ULCER
     Dates: start: 20050607, end: 20050607

REACTIONS (1)
  - Nephrogenic systemic fibrosis [Not Recovered/Not Resolved]
